FAERS Safety Report 7297219-1 (Version None)
Quarter: 2011Q1

REPORT INFORMATION
  Report Type: 
  Country: None (occurrence: None)
  Receive Date: 20110216
  Receipt Date: 20110207
  Transmission Date: 20110831
  Serious: No
  Sender: FDA-Public Use
  Company Number: US-CEPHALON-2011000599

PATIENT
  Sex: Male

DRUGS (4)
  1. FENTORA [Suspect]
     Indication: CANCER PAIN
     Route: 002
  2. OXYCODONE [Concomitant]
     Dates: start: 20101201
  3. HYDROMORPHONE HCL [Concomitant]
     Dates: start: 20090101
  4. FENTANYL-100 [Concomitant]
     Dates: start: 20100101

REACTIONS (1)
  - POOR QUALITY DRUG ADMINISTERED [None]
